FAERS Safety Report 6782164-8 (Version None)
Quarter: 2010Q2

REPORT INFORMATION
  Report Type: 
  Country: None (occurrence: None)
  Receive Date: 20100621
  Receipt Date: 20100608
  Transmission Date: 20101027
  Serious: No
  Sender: FDA-Public Use
  Company Number: PHHY2010US38359

PATIENT
  Age: 66 Year
  Sex: Female

DRUGS (15)
  1. TASIGNA [Suspect]
     Indication: CHRONIC MYELOID LEUKAEMIA
     Dosage: 400 MG, BID
     Route: 048
     Dates: start: 20100101
  2. VITAMIN D [Concomitant]
  3. B-COMPLEX ^KRKA^ [Concomitant]
  4. VITAMIN E [Concomitant]
  5. CALCIUM CARBONATE [Concomitant]
     Dosage: UNK
  6. M.V.I. [Concomitant]
  7. TUMS [Concomitant]
  8. VALIUM [Concomitant]
  9. MELATONIN [Concomitant]
  10. DONNATAL [Concomitant]
  11. REGELAN [Concomitant]
  12. ATROPINE [Concomitant]
  13. SPIRONOLACTONE [Concomitant]
  14. FUROSEMIDE [Concomitant]
     Dosage: UNK
  15. KLOR-CON [Concomitant]

REACTIONS (1)
  - LABELLED DRUG-FOOD INTERACTION MEDICATION ERROR [None]
